FAERS Safety Report 6883795-7 (Version None)
Quarter: 2010Q3

REPORT INFORMATION
  Report Type: 
  Country: None (occurrence: None)
  Receive Date: 20100727
  Receipt Date: 20100719
  Transmission Date: 20110219
  Serious: Yes (Other)
  Sender: FDA-Public Use
  Company Number: EC-MILLENNIUM PHARMACEUTICALS, INC.-2010-04032

PATIENT

DRUGS (3)
  1. VELCADE [Suspect]
     Indication: MULTIPLE MYELOMA
     Route: 065
  2. PREDNISONE [Concomitant]
     Indication: MULTIPLE MYELOMA
  3. MELPHALAN [Concomitant]
     Indication: MULTIPLE MYELOMA

REACTIONS (3)
  - GASTROINTESTINAL CANDIDIASIS [None]
  - OESOPHAGEAL ACHALASIA [None]
  - THROMBOCYTOPENIA [None]
